FAERS Safety Report 9637041 (Version 1)
Quarter: 2013Q4

REPORT INFORMATION
  Report Type: Spontaneous
  Country: US (occurrence: US)
  Receive Date: 20131022
  Receipt Date: 20131022
  Transmission Date: 20140711
  Serious: Yes (Other)
  Sender: FDA-Public Use
  Company Number: US-SHIRE-ALL1-2013-06997

PATIENT
  Age: 10 Year
  Sex: Female
  Weight: 53.06 kg

DRUGS (6)
  1. VYVANSE [Suspect]
     Indication: ATTENTION DEFICIT/HYPERACTIVITY DISORDER
     Dosage: 20 MG, 1X/DAY:QD
     Route: 048
     Dates: start: 201111, end: 201206
  2. VYVANSE [Suspect]
     Dosage: 30 MG, 1X/DAY:QD
     Route: 048
     Dates: start: 201208, end: 20130209
  3. MULTI-VIT [Concomitant]
     Indication: NUTRITIONAL SUPPLEMENTATION
     Dosage: UNK, 1X/DAY:QD
     Route: 048
     Dates: start: 2005, end: 201304
  4. DHA [Concomitant]
     Indication: NUTRITIONAL SUPPLEMENTATION
     Dosage: 1000 MG, 1X/DAY:QD
     Route: 048
     Dates: start: 2010
  5. VITAMIN D                          /00107901/ [Concomitant]
     Indication: NUTRITIONAL SUPPLEMENTATION
     Dosage: 1000 IU, 1X/DAY:QD
     Route: 048
     Dates: start: 2010
  6. ONE-A-DAY                          /07499601/ [Concomitant]
     Indication: NUTRITIONAL SUPPLEMENTATION
     Dosage: UNK UNK, 1X/DAY:QD
     Route: 048
     Dates: start: 201304

REACTIONS (9)
  - Grand mal convulsion [Recovered/Resolved]
  - Epilepsy [Not Recovered/Not Resolved]
  - Growth accelerated [Recovered/Resolved]
  - Social avoidant behaviour [Recovered/Resolved]
  - Nail picking [Recovered/Resolved]
  - Weight gain poor [Recovered/Resolved]
  - Decreased appetite [Recovered/Resolved]
  - Insomnia [Recovered/Resolved]
  - Drug effect decreased [Recovered/Resolved]
